FAERS Safety Report 5174109-1 (Version None)
Quarter: 2006Q4

REPORT INFORMATION
  Report Type: 
  Country: None (occurrence: None)
  Receive Date: 20061214
  Receipt Date: 20061025
  Transmission Date: 20070319
  Serious: No
  Sender: FDA-Public Use
  Company Number: US-AMGEN-KDL198124

PATIENT
  Sex: Female

DRUGS (11)
  1. ENBREL [Suspect]
     Indication: RHEUMATOID ARTHRITIS
     Route: 058
     Dates: start: 20030101
  2. ENBREL [Suspect]
     Indication: PSORIASIS
  3. ACTOS [Concomitant]
  4. METHOTREXATE [Concomitant]
  5. AVALIDE [Concomitant]
  6. EFFEXOR [Concomitant]
  7. INSULIN LENTE [Concomitant]
  8. ADVAIR DISKUS 100/50 [Concomitant]
  9. VERELAN [Concomitant]
  10. LORTAB [Concomitant]
  11. AMBIEN [Concomitant]

REACTIONS (1)
  - INJECTION SITE PAIN [None]
